FAERS Safety Report 17488497 (Version 1)
Quarter: 2020Q1

REPORT INFORMATION
  Report Type: Spontaneous
  Country: PT (occurrence: PT)
  Receive Date: 20200303
  Receipt Date: 20200303
  Transmission Date: 20200409
  Serious: Yes (Other)
  Sender: FDA-Public Use
  Company Number: NVSC2020PT059269

PATIENT
  Age: 22 Year
  Sex: Female

DRUGS (6)
  1. HYDROXYZINE [Suspect]
     Active Substance: HYDROXYZINE HYDROCHLORIDE
     Indication: PYREXIA
     Dosage: UNK
     Route: 065
  2. ACETAMINOPHEN (PARACETAMOL) [Suspect]
     Active Substance: ACETAMINOPHEN
     Indication: ODYNOPHAGIA
  3. ACETAMINOPHEN (PARACETAMOL) [Suspect]
     Active Substance: ACETAMINOPHEN
     Indication: PYREXIA
     Dosage: UNK
     Route: 065
  4. KESTINE [Suspect]
     Active Substance: EBASTINE
     Indication: PYREXIA
     Dosage: UNK
     Route: 065
  5. KESTINE [Suspect]
     Active Substance: EBASTINE
     Indication: ODYNOPHAGIA
  6. HYDROXYZINE [Suspect]
     Active Substance: HYDROXYZINE HYDROCHLORIDE
     Indication: ODYNOPHAGIA

REACTIONS (2)
  - Erythema multiforme [Unknown]
  - Drug ineffective [Unknown]
